FAERS Safety Report 16398063 (Version 1)
Quarter: 2019Q2

REPORT INFORMATION
  Report Type: Spontaneous
  Country: US (occurrence: US)
  Receive Date: 20190606
  Receipt Date: 20190606
  Transmission Date: 20190711
  Serious: No
  Sender: FDA-Public Use
  Company Number: US-JNJFOC-20190543002

PATIENT
  Sex: Female
  Weight: 86.18 kg

DRUGS (19)
  1. DULOXETINE. [Concomitant]
     Active Substance: DULOXETINE
     Indication: POST-TRAUMATIC STRESS DISORDER
     Dosage: STARTED THE END OF LAST YEAR
     Route: 048
     Dates: start: 2018
  2. DULOXETINE. [Concomitant]
     Active Substance: DULOXETINE
     Indication: ANXIETY
     Dosage: STARTED THE END OF LAST YEAR
     Route: 048
     Dates: start: 2018
  3. ZOLPIDEM [Concomitant]
     Active Substance: ZOLPIDEM\ZOLPIDEM TARTRATE
     Indication: SLEEP DISORDER THERAPY
     Dosage: PER NIGHT
     Route: 048
     Dates: start: 2018
  4. LOSARTAN POTASSIUM. [Concomitant]
     Active Substance: LOSARTAN POTASSIUM
     Indication: HYPERTENSION
     Route: 048
     Dates: start: 2016
  5. ALBUTEROL. [Concomitant]
     Active Substance: ALBUTEROL
     Indication: ASTHMA
     Route: 055
  6. ACETAMINOPHEN. [Suspect]
     Active Substance: ACETAMINOPHEN
     Indication: HEADACHE
     Route: 048
  7. DOXEPIN [Concomitant]
     Active Substance: DOXEPIN
     Indication: ANXIETY
     Dosage: TWO PER NIGHT, STARTED IN THE FALL OF 2018 ABOUT A WEEK OR TWO AFTER DULOXETINE
     Route: 048
     Dates: start: 2018
  8. BENADRYL [Concomitant]
     Active Substance: DIPHENHYDRAMINE HYDROCHLORIDE
     Indication: MULTIPLE ALLERGIES
     Route: 048
  9. LYRICA [Concomitant]
     Active Substance: PREGABALIN
     Indication: NEURALGIA
     Dosage: ONE CAPSULE IN MORNING AND ONE IN EVENING
     Route: 048
  10. ACETAMINOPHEN. [Suspect]
     Active Substance: ACETAMINOPHEN
     Indication: BACK PAIN
     Route: 048
  11. DULOXETINE. [Concomitant]
     Active Substance: DULOXETINE
     Indication: DEPRESSION
     Dosage: STARTED THE END OF LAST YEAR
     Route: 048
     Dates: start: 2018
  12. DULERA [Concomitant]
     Active Substance: FORMOTEROL FUMARATE DIHYDRATE\MOMETASONE FUROATE
     Indication: ASTHMA
     Dosage: 100 MCG/ 5 MCG, 2 PUFFS IN THE MORNING AND 2 PUFFS AT NIGHT,??STARTED IN 2014 OR 2015
     Route: 055
  13. LYRICA [Concomitant]
     Active Substance: PREGABALIN
     Indication: PAIN
     Dosage: ONE CAPSULE IN MORNING AND ONE IN EVENING
     Route: 048
  14. VOLTAREN [Concomitant]
     Active Substance: DICLOFENAC SODIUM
     Indication: ARTHRITIS
     Dosage: APPLIED TO HER KNEES AS NEEDED, 3-4 TIMES DAY??STARTED OVER A YEAR OR TWO AGO
     Route: 061
  15. DULOXETINE. [Concomitant]
     Active Substance: DULOXETINE
     Indication: FIBROMYALGIA
     Dosage: STARTED THE END OF LAST YEAR
     Route: 048
     Dates: start: 2018
  16. DOXEPIN [Concomitant]
     Active Substance: DOXEPIN
     Indication: SLEEP DISORDER THERAPY
     Dosage: TWO PER NIGHT, STARTED IN THE FALL OF 2018 ABOUT A WEEK OR TWO AFTER DULOXETINE
     Route: 048
     Dates: start: 2018
  17. LYRICA [Concomitant]
     Active Substance: PREGABALIN
     Indication: BACK PAIN
     Dosage: ONE CAPSULE IN MORNING AND ONE IN EVENING
     Route: 048
  18. LYRICA [Concomitant]
     Active Substance: PREGABALIN
     Indication: FIBROMYALGIA
     Dosage: ONE CAPSULE IN MORNING AND ONE IN EVENING
     Route: 048
  19. DULOXETINE. [Concomitant]
     Active Substance: DULOXETINE
     Indication: NEURALGIA
     Dosage: STARTED THE END OF LAST YEAR
     Route: 048
     Dates: start: 2018

REACTIONS (1)
  - Therapeutic product effect incomplete [Unknown]
